FAERS Safety Report 12421847 (Version 1)
Quarter: 2016Q2

REPORT INFORMATION
  Report Type: Spontaneous
  Country: US (occurrence: US)
  Receive Date: 20160531
  Receipt Date: 20160531
  Transmission Date: 20160815
  Serious: Yes (Hospitalization, Other)
  Sender: FDA-Public Use
  Company Number: US-ZYDUS-011186

PATIENT
  Age: 2 Year
  Sex: Female

DRUGS (1)
  1. MORPHINE/MORPHINE HYDROCHLORIDE/MORPHINE SULFATE/MORPHINE TARTRATE [Suspect]
     Active Substance: MORPHINE\MORPHINE HYDROCHLORIDE\MORPHINE SULFATE\MORPHINE TARTRATE
     Indication: PRODUCT USED FOR UNKNOWN INDICATION
     Route: 048

REACTIONS (14)
  - Lethargy [Unknown]
  - Speech disorder [Recovering/Resolving]
  - Accidental overdose [Unknown]
  - Leukoencephalopathy [Unknown]
  - Hydrocephalus [Unknown]
  - Brain oedema [Unknown]
  - Gross motor delay [Unknown]
  - Visual impairment [Recovering/Resolving]
  - Hypokinesia [Recovering/Resolving]
  - Seizure [Unknown]
  - Petechiae [Unknown]
  - Haemodynamic instability [Unknown]
  - Posturing [Unknown]
  - Cognitive disorder [Unknown]
